FAERS Safety Report 8567822-7 (Version None)
Quarter: 2012Q3

REPORT INFORMATION
  Report Type: 
  Country: None (occurrence: None)
  Receive Date: 20120803
  Receipt Date: 20120725
  Transmission Date: 20120928
  Serious: Yes (Death, Hospitalization, Other)
  Sender: FDA-Public Use
  Company Number: CA-PFIZER INC-2012154673

PATIENT
  Age: 51 Year
  Sex: Male

DRUGS (21)
  1. OXALIPLATIN [Suspect]
     Dosage: 166 MG, EVERY 3 WEEKS
     Route: 042
     Dates: start: 20120321, end: 20120627
  2. IBUPROFEN (ADVIL) [Concomitant]
     Indication: PROPHYLAXIS
     Dosage: 200 MG, 2X/DAY
     Route: 048
     Dates: start: 20120320
  3. ZOFRAN [Concomitant]
     Indication: PROPHYLAXIS OF NAUSEA AND VOMITING
     Dosage: 8 MG, UNK
     Route: 048
     Dates: start: 20120321
  4. DECADRON PHOSPHATE [Concomitant]
     Indication: PROPHYLACTIC CHEMOTHERAPY
     Dosage: 10 MG, UNK
     Route: 048
     Dates: start: 20120321
  5. MOTILIUM [Concomitant]
     Indication: PROPHYLAXIS
     Dosage: 10 MG, 4X/DAY
     Route: 048
     Dates: start: 20120528
  6. IRINOTECAN HCL [Suspect]
     Dosage: 234 MG, EVERY 3 WEEKS
     Route: 042
     Dates: start: 20120321, end: 20120627
  7. ENSURE [Concomitant]
     Indication: MEDICAL DIET
     Dosage: 1 CAN, 1X/DAY
     Route: 048
     Dates: start: 20120301
  8. IMMUNE GLOBULIN (HUMAN) [Concomitant]
     Indication: IMMUNE ENHANCEMENT THERAPY
     Dosage: 45 G, MONTHLY
     Route: 042
     Dates: start: 20060101
  9. VITAMIN B-12 [Concomitant]
     Indication: VITAMIN B12 INCREASED
     Dosage: UNK
     Route: 030
     Dates: start: 19980101
  10. ZOFRAN [Concomitant]
     Indication: PROPHYLACTIC CHEMOTHERAPY
  11. PANTOPRAZOLE SODIUM [Concomitant]
     Indication: GASTROOESOPHAGEAL REFLUX DISEASE
     Dosage: 40 MG, 2X/DAY
     Route: 048
     Dates: start: 20120102
  12. LAX-A-DAY [Concomitant]
     Indication: CONSTIPATION
     Dosage: 17 G, 1X/DAY
     Route: 048
     Dates: start: 20120528
  13. XELODA [Suspect]
     Dosage: 1450 MG, 2X/DAY FOR 14 DAYS
     Route: 048
     Dates: start: 20120322, end: 20120627
  14. SENOKOT [Concomitant]
     Indication: CONSTIPATION PROPHYLAXIS
     Dosage: 8 MG, AS NEEDED
     Route: 048
     Dates: start: 20120323
  15. MAXERAN [Concomitant]
     Indication: PROPHYLAXIS OF NAUSEA AND VOMITING
     Dosage: 10 MG, AS NEEDED
     Route: 048
     Dates: start: 20120326
  16. DECADRON PHOSPHATE [Concomitant]
     Indication: PROPHYLAXIS OF NAUSEA AND VOMITING
  17. CALCIUM CARBONATE [Concomitant]
     Indication: PROPHYLAXIS
     Dosage: 1 TO 2 TABLETS AS NEEDED
     Route: 048
  18. COLACE [Concomitant]
     Indication: CONSTIPATION PROPHYLAXIS
     Dosage: 200 MG, AS NEEDED
     Route: 048
     Dates: start: 20120323
  19. ATROPINE [Concomitant]
     Indication: PROPHYLACTIC CHEMOTHERAPY
     Dosage: 0.6 MG, UNK
     Route: 058
     Dates: start: 20120321
  20. TYLENOL (CAPLET) [Concomitant]
     Indication: PROPHYLAXIS
     Dosage: 2 TABLETS, 2X/DAY
     Route: 048
     Dates: start: 20120316
  21. MAXERAN [Concomitant]
     Indication: PROPHYLACTIC CHEMOTHERAPY
     Dosage: 10 MG, AS NEEDED
     Route: 048
     Dates: start: 20120321

REACTIONS (4)
  - NEOPLASM MALIGNANT [None]
  - SUPRAVENTRICULAR TACHYCARDIA [None]
  - HYPOKALAEMIA [None]
  - DISEASE PROGRESSION [None]
